FAERS Safety Report 8949893 (Version 2)
Quarter: 2012Q4

REPORT INFORMATION
  Report Type: 
  Country: US (occurrence: US)
  Receive Date: 20121206
  Receipt Date: 20121226
  Transmission Date: 20130627
  Serious: Yes (Other)
  Sender: FDA-Public Use
  Company Number: US-PFIZER INC-2012306059

PATIENT
  Age: 58 Year
  Sex: Female
  Weight: 83.45 kg

DRUGS (3)
  1. LYRICA [Suspect]
     Indication: NERVE PAIN
     Dosage: 75 mg, 2x/day
     Route: 048
     Dates: start: 2008
  2. LIPITOR [Suspect]
     Indication: HIGH CHOLESTEROL
     Dosage: 20 mg, 1x/day
     Route: 048
     Dates: start: 2004
  3. TRAMADOL [Concomitant]
     Dosage: UNK

REACTIONS (3)
  - Back disorder [Unknown]
  - Migraine [Unknown]
  - Headache [Unknown]
